FAERS Safety Report 15231151 (Version 1)
Quarter: 2018Q3

REPORT INFORMATION
  Report Type: Spontaneous
  Country: US (occurrence: US)
  Receive Date: 20180802
  Receipt Date: 20180802
  Transmission Date: 20181010
  Serious: Yes (Death, Hospitalization, Other)
  Sender: FDA-Public Use
  Company Number: US-COVIS PHARMA B.V.-2018COV03721

PATIENT
  Age: 44 Year
  Sex: Male

DRUGS (1)
  1. NISOLDIPINE. [Suspect]
     Active Substance: NISOLDIPINE
     Route: 048

REACTIONS (7)
  - Depressed level of consciousness [Not Recovered/Not Resolved]
  - Hypotension [Not Recovered/Not Resolved]
  - Encephalopathy [Not Recovered/Not Resolved]
  - Pneumonia aspiration [Not Recovered/Not Resolved]
  - Acute respiratory distress syndrome [Fatal]
  - Toxicity to various agents [Not Recovered/Not Resolved]
  - Renal failure [Not Recovered/Not Resolved]
